FAERS Safety Report 16053907 (Version 5)
Quarter: 2019Q3

REPORT INFORMATION
  Report Type: Report from Study
  Country: US (occurrence: US)
  Receive Date: 20190308
  Receipt Date: 20190828
  Transmission Date: 20191004
  Serious: Yes (Hospitalization)
  Sender: FDA-Public Use
  Company Number: US-ACTELION-A-NJ2018-178330

PATIENT
  Age: 83 Year
  Sex: Female

DRUGS (1)
  1. OPSUMIT [Suspect]
     Active Substance: MACITENTAN
     Indication: PULMONARY ARTERIAL HYPERTENSION
     Dosage: 10 MG, QD
     Route: 048
     Dates: start: 20180228

REACTIONS (11)
  - Faecaloma [Unknown]
  - Syncope [Unknown]
  - Rectal haemorrhage [Unknown]
  - Herpes zoster [Unknown]
  - Neuralgia [Unknown]
  - Fall [Recovered/Resolved]
  - Onychomycosis [Unknown]
  - Hip fracture [Recovered/Resolved]
  - Fluid retention [Unknown]
  - Urinary tract infection [Unknown]
  - Blood sodium decreased [Unknown]

NARRATIVE: CASE EVENT DATE: 201808
